FAERS Safety Report 9543329 (Version 1)
Quarter: 2013Q3

REPORT INFORMATION
  Report Type: Spontaneous
  Country: FR (occurrence: FR)
  Receive Date: 20130923
  Receipt Date: 20130923
  Transmission Date: 20140515
  Serious: Yes (Hospitalization)
  Sender: FDA-Public Use
  Company Number: FR-PFIZER INC-2013269256

PATIENT
  Age: 74 Year
  Sex: Female

DRUGS (7)
  1. ALDACTAZINE [Suspect]
     Indication: OEDEMA PERIPHERAL
     Dosage: 1 DF A DAY
     Route: 048
     Dates: start: 20130604, end: 20130608
  2. AROMASINE [Suspect]
     Indication: BREAST CANCER
     Dosage: 1 DF, 1X/DAY
     Route: 048
     Dates: start: 20130328, end: 20130617
  3. AFINITOR [Suspect]
     Indication: BREAST CANCER
     Dosage: 1 DF, 1X/DAY
     Route: 048
     Dates: start: 20130328, end: 20130617
  4. PARACETAMOL WITH CODEINE [Concomitant]
  5. FLECAINE [Concomitant]
  6. CLASTOBAN [Concomitant]
     Indication: METASTASES TO BONE
     Dosage: UNK
     Dates: start: 2010
  7. LAMALINE [Concomitant]
     Dosage: 1 DF, DAILY
     Dates: start: 20130604, end: 20130605

REACTIONS (6)
  - Toxic skin eruption [Recovered/Resolved]
  - Pruritus [Recovered/Resolved]
  - Oedema peripheral [Recovered/Resolved]
  - Eosinophilia [Recovering/Resolving]
  - Hepatocellular injury [Recovering/Resolving]
  - Prerenal failure [Recovered/Resolved]
